FAERS Safety Report 4416695-2 (Version None)
Quarter: 2004Q2

REPORT INFORMATION
  Report Type: 
  Country: None (occurrence: None)
  Receive Date: 20040630
  Receipt Date: 20030731
  Transmission Date: 20050107
  Serious: Yes (Disabling)
  Sender: FDA-Public Use
  Company Number: WAES 0308USA00043

PATIENT
  Age: 83 Year
  Sex: Female

DRUGS (2)
  1. HYZAAR [Suspect]
     Indication: BLOOD PRESSURE
     Dosage: 50-12.5 MG/DAILY/PO
     Route: 048
     Dates: start: 20030726
  2. COZAAR [Concomitant]

REACTIONS (1)
  - ASTHENIA [None]
